FAERS Safety Report 24443347 (Version 1)
Quarter: 2024Q4

REPORT INFORMATION
  Report Type: Spontaneous
  Country: PL (occurrence: PL)
  Receive Date: 20241016
  Receipt Date: 20241016
  Transmission Date: 20250115
  Serious: Yes (Other)
  Sender: AMGEN
  Company Number: PL-AMGEN-POLSP2024201234

PATIENT

DRUGS (1)
  1. ADALIMUMAB [Suspect]
     Active Substance: ADALIMUMAB
     Indication: Crohn^s disease
     Dosage: UNK
     Route: 065

REACTIONS (17)
  - Pyoderma gangrenosum [Unknown]
  - Malignant melanoma [Unknown]
  - Erythema multiforme [Unknown]
  - Skin cancer [Unknown]
  - Lupus-like syndrome [Unknown]
  - Hidradenitis [Unknown]
  - Erythema nodosum [Unknown]
  - Vitiligo [Unknown]
  - Xerosis [Unknown]
  - Dermatitis psoriasiform [Unknown]
  - Eczema [Unknown]
  - Drug hypersensitivity [Unknown]
  - Vasculitis [Unknown]
  - Psoriasis [Unknown]
  - Skin infection [Unknown]
  - Urticaria [Unknown]
  - Therapeutic product effect decreased [Unknown]
